FAERS Safety Report 16982957 (Version 2)
Quarter: 2019Q4

REPORT INFORMATION
  Report Type: Spontaneous
  Country: US (occurrence: US)
  Receive Date: 20191101
  Receipt Date: 20191223
  Transmission Date: 20200122
  Serious: Yes (Death, Other)
  Sender: FDA-Public Use
  Company Number: US-SUNOVION-2019SUN004730

PATIENT
  Age: 48 Year
  Sex: Female

DRUGS (3)
  1. LATUDA [Suspect]
     Active Substance: LURASIDONE HYDROCHLORIDE
     Indication: BIPOLAR II DISORDER
     Dosage: 40 MG, QHS
     Route: 048
     Dates: start: 20191010
  2. ABILIFY [Concomitant]
     Active Substance: ARIPIPRAZOLE
     Indication: BIPOLAR II DISORDER
     Dosage: 5 MG
     Route: 065
     Dates: start: 20190810, end: 20190920
  3. LATUDA [Suspect]
     Active Substance: LURASIDONE HYDROCHLORIDE
     Indication: DEPRESSION
     Dosage: 20 MG, QHS
     Route: 048
     Dates: start: 20190923, end: 20191009

REACTIONS (5)
  - Restlessness [Unknown]
  - Feeling abnormal [Unknown]
  - Off label use [Unknown]
  - Completed suicide [Fatal]
  - Akathisia [Not Recovered/Not Resolved]

NARRATIVE: CASE EVENT DATE: 20191017
